FAERS Safety Report 12770973 (Version 1)
Quarter: 2016Q3

REPORT INFORMATION
  Report Type: Spontaneous
  Country: NO (occurrence: NO)
  Receive Date: 20160922
  Receipt Date: 20160922
  Transmission Date: 20161109
  Serious: Yes (Hospitalization, Other)
  Sender: FDA-Public Use
  Company Number: NO-PFIZER INC-2016439452

PATIENT
  Age: 51 Year
  Sex: Female

DRUGS (2)
  1. TAZOCIN [Suspect]
     Active Substance: PIPERACILLIN SODIUM\TAZOBACTAM SODIUM
     Indication: MEDIASTINITIS
     Dosage: 4/0.5 G X 4 (SOMEWHAT CONTRADICTORY INFORMATION REGARDING DOSING; 1X3 OR 1X4)
     Dates: start: 20160817, end: 20160831
  2. KLEXANE [Concomitant]
     Active Substance: ENOXAPARIN
     Dosage: 40 X 1 (NOT FURTHER SPECIFIED)

REACTIONS (5)
  - General physical health deterioration [Recovered/Resolved]
  - Headache [Recovered/Resolved]
  - Leukopenia [Recovered/Resolved]
  - Pyrexia [Recovered/Resolved]
  - Rash generalised [Not Recovered/Not Resolved]

NARRATIVE: CASE EVENT DATE: 20160829
